FAERS Safety Report 25049608 (Version 2)
Quarter: 2025Q2

REPORT INFORMATION
  Report Type: Report from Study
  Country: US (occurrence: US)
  Receive Date: 20250307
  Receipt Date: 20250624
  Transmission Date: 20250717
  Serious: Yes (Other)
  Sender: ACADIA PHARMACEUTICALS
  Company Number: US-ACADIA PHARMACEUTICALS INC.-ACA-2025-PIM-002072

PATIENT
  Age: 74 Year
  Sex: Male

DRUGS (13)
  1. NUPLAZID [Suspect]
     Active Substance: PIMAVANSERIN TARTRATE
     Indication: Parkinson^s disease psychosis
     Dosage: 34 MILLIGRAM, QD
     Route: 048
     Dates: start: 20250124, end: 20250613
  2. LISINOPRIL [Concomitant]
     Active Substance: LISINOPRIL
  3. ZOLOFT [Concomitant]
     Active Substance: SERTRALINE HYDROCHLORIDE
  4. PRAMIPEXOLE [Concomitant]
     Active Substance: PRAMIPEXOLE
  5. CARBIDOPA\LEVODOPA [Concomitant]
     Active Substance: CARBIDOPA\LEVODOPA
  6. SEROQUEL [Concomitant]
     Active Substance: QUETIAPINE FUMARATE
  7. FARXIGA [Concomitant]
     Active Substance: DAPAGLIFLOZIN PROPANEDIOL
  8. DONEPEZIL [Concomitant]
     Active Substance: DONEPEZIL
  9. VENTOLIN HFA [Concomitant]
     Active Substance: ALBUTEROL SULFATE
  10. FUROSEMIDE [Concomitant]
     Active Substance: FUROSEMIDE
  11. POTASSIUM [Concomitant]
     Active Substance: POTASSIUM
  12. REMERON [Concomitant]
     Active Substance: MIRTAZAPINE
  13. RIVASTIGMINE [Concomitant]
     Active Substance: RIVASTIGMINE

REACTIONS (2)
  - Hallucination [Not Recovered/Not Resolved]
  - Drug ineffective [Not Recovered/Not Resolved]

NARRATIVE: CASE EVENT DATE: 20250124
